FAERS Safety Report 13923213 (Version 3)
Quarter: 2019Q4

REPORT INFORMATION
  Report Type: Spontaneous
  Country: US (occurrence: US)
  Receive Date: 20170831
  Receipt Date: 20191203
  Transmission Date: 20200122
  Serious: Yes (Hospitalization, Other)
  Sender: FDA-Public Use
  Company Number: US-ASTRAZENECA-2017SE88109

PATIENT
  Age: 25783 Day
  Sex: Female
  Weight: 89.8 kg

DRUGS (21)
  1. NEXIUM [Suspect]
     Active Substance: ESOMEPRAZOLE MAGNESIUM
     Indication: GASTRIC PH DECREASED
     Route: 048
     Dates: start: 2002, end: 2016
  2. PROTONIX [Suspect]
     Active Substance: PANTOPRAZOLE SODIUM
     Indication: GASTRIC PH DECREASED
     Route: 065
     Dates: start: 20160527
  3. LANTUS [Concomitant]
     Active Substance: INSULIN GLARGINE
     Dosage: 100 U/ML
     Dates: start: 20021122
  4. ZYPREXA [Concomitant]
     Active Substance: OLANZAPINE
     Route: 048
     Dates: start: 20021122
  5. VALSARTAN. [Concomitant]
     Active Substance: VALSARTAN
     Indication: HYPERTENSION
     Route: 048
     Dates: start: 20111216
  6. HUMALOG [Concomitant]
     Active Substance: INSULIN LISPRO
     Dosage: 100 U/ML
     Dates: start: 20021122
  7. ENALAPRIL MALEATE. [Concomitant]
     Active Substance: ENALAPRIL MALEATE
     Route: 048
     Dates: start: 20021122
  8. LORATADINE. [Concomitant]
     Active Substance: LORATADINE
     Route: 048
     Dates: start: 20111216
  9. PROTONIX [Suspect]
     Active Substance: PANTOPRAZOLE SODIUM
     Indication: GASTRIC PH DECREASED
     Dosage: GENERIC
     Route: 065
  10. ABILIFY [Concomitant]
     Active Substance: ARIPIPRAZOLE
     Route: 048
     Dates: start: 20150901
  11. PROTONIX [Suspect]
     Active Substance: PANTOPRAZOLE SODIUM
     Indication: GASTRIC PH DECREASED
     Route: 065
     Dates: start: 2002, end: 2016
  12. ZETIA [Concomitant]
     Active Substance: EZETIMIBE
     Route: 048
     Dates: start: 20111216
  13. ASPIRIN. [Concomitant]
     Active Substance: ASPIRIN
     Route: 048
     Dates: start: 20021122
  14. PROMETHAZINE [Concomitant]
     Active Substance: PROMETHAZINE HYDROCHLORIDE
     Dosage: 6.25-15 MG/5ML
     Dates: start: 20111216
  15. MECLIZINE HCL [Concomitant]
     Active Substance: MECLIZINE HYDROCHLORIDE
     Route: 048
     Dates: start: 20111216
  16. NEXIUM [Suspect]
     Active Substance: ESOMEPRAZOLE MAGNESIUM
     Indication: GASTRIC PH DECREASED
     Route: 048
     Dates: start: 2004
  17. NEXIUM [Suspect]
     Active Substance: ESOMEPRAZOLE MAGNESIUM
     Indication: GASTRIC PH DECREASED
     Dosage: GENERIC
     Route: 065
  18. CRESTOR [Concomitant]
     Active Substance: ROSUVASTATIN CALCIUM
     Route: 048
     Dates: start: 20111216
  19. NEXIUM [Suspect]
     Active Substance: ESOMEPRAZOLE MAGNESIUM
     Indication: GASTRIC PH DECREASED
     Route: 048
     Dates: start: 20111216
  20. OMEPRAZOLE. [Suspect]
     Active Substance: OMEPRAZOLE
     Dosage: GENERIC
     Route: 065
  21. HYDROCODONE [Concomitant]
     Active Substance: HYDROCODONE
     Indication: PAIN
     Route: 048
     Dates: start: 20111216

REACTIONS (6)
  - Chronic kidney disease [Not Recovered/Not Resolved]
  - Acute kidney injury [Unknown]
  - Secondary hyperthyroidism [Unknown]
  - End stage renal disease [Unknown]
  - Renal failure [Unknown]
  - Tubulointerstitial nephritis [Unknown]

NARRATIVE: CASE EVENT DATE: 20111216
